FAERS Safety Report 6314046-X (Version None)
Quarter: 2009Q3

REPORT INFORMATION
  Report Type: 
  Country: None (occurrence: None)
  Receive Date: 20090818
  Receipt Date: 20090807
  Transmission Date: 20100115
  Serious: No
  Sender: FDA-Public Use
  Company Number: US-ELI_LILLY_AND_COMPANY-US200812000244

PATIENT
  Sex: Male
  Weight: 106.58 kg

DRUGS (2)
  1. ZYPREXA [Suspect]
     Indication: DEPRESSION
     Dosage: 2.5 MG, 2/D
     Dates: start: 20080801
  2. ZYPREXA [Suspect]
     Dosage: 5 MG, 2/D
     Dates: start: 20080701

REACTIONS (6)
  - BLOOD CHOLESTEROL DECREASED [None]
  - BLOOD CHOLESTEROL INCREASED [None]
  - BLOOD TESTOSTERONE DECREASED [None]
  - BLOOD TRIGLYCERIDES INCREASED [None]
  - HYPERTENSION [None]
  - WEIGHT INCREASED [None]
